FAERS Safety Report 6918516-2 (Version None)
Quarter: 2010Q3

REPORT INFORMATION
  Report Type: 
  Country: None (occurrence: None)
  Receive Date: 20100811
  Receipt Date: 20100728
  Transmission Date: 20110219
  Serious: Yes (Other)
  Sender: FDA-Public Use
  Company Number: US-PAR PHARMACEUTICAL, INC-2010SCPR001963

PATIENT

DRUGS (2)
  1. SUMATRIPTAN [Suspect]
     Indication: MIGRAINE
     Dosage: 0.5 ML, PRN
     Route: 065
     Dates: start: 20100617, end: 20100711
  2. DRAMAMINE [Concomitant]
     Indication: NAUSEA
     Dosage: 50 MG, UNKNOWN
     Route: 065

REACTIONS (5)
  - DRUG INEFFECTIVE [None]
  - PRODUCT QUALITY ISSUE [None]
  - VISUAL IMPAIRMENT [None]
  - VITREOUS FLOATERS [None]
  - VITREOUS HAEMORRHAGE [None]
